FAERS Safety Report 4510207-0 (Version None)
Quarter: 2004Q4

REPORT INFORMATION
  Report Type: 
  Country: None (occurrence: None)
  Receive Date: 20041119
  Receipt Date: 20041103
  Transmission Date: 20050328
  Serious: Yes (Death)
  Sender: FDA-Public Use
  Company Number: GBS041115878

PATIENT
  Age: 22 Year
  Sex: Male

DRUGS (1)
  1. PROZAC [Suspect]
     Indication: DEPRESSION
     Dosage: 20 MG
     Dates: start: 20030826

REACTIONS (2)
  - AGITATION [None]
  - COMPLETED SUICIDE [None]
